FAERS Safety Report 5153723-3 (Version None)
Quarter: 2006Q4

REPORT INFORMATION
  Report Type: 
  Country: None (occurrence: None)
  Receive Date: 20061120
  Receipt Date: 20061011
  Transmission Date: 20070319
  Serious: Yes (Other)
  Sender: FDA-Public Use
  Company Number: US-RB-004234-06

PATIENT
  Sex: Female
  Weight: 63 kg

DRUGS (2)
  1. SUBOXONE [Suspect]
     Route: 060
     Dates: start: 20061002
  2. SUBUTEX [Suspect]

REACTIONS (2)
  - ABORTION SPONTANEOUS [None]
  - PREGNANCY [None]
